FAERS Safety Report 22755037 (Version 4)
Quarter: 2024Q1

REPORT INFORMATION
  Report Type: Report from Study
  Country: US (occurrence: US)
  Receive Date: 20230727
  Receipt Date: 20240203
  Transmission Date: 20240410
  Serious: Yes (Hospitalization, Other)
  Sender: FDA-Public Use
  Company Number: US-002147023-NVSC2023US163397

PATIENT
  Age: 58 Year
  Sex: Male

DRUGS (3)
  1. KESIMPTA [Suspect]
     Active Substance: OFATUMUMAB
     Indication: Multiple sclerosis
     Dosage: UNK
     Route: 058
     Dates: start: 20230707
  2. KESIMPTA [Suspect]
     Active Substance: OFATUMUMAB
     Dosage: UNK
     Route: 065
     Dates: start: 20230714
  3. KESIMPTA [Suspect]
     Active Substance: OFATUMUMAB
     Dosage: UNK
     Route: 065
     Dates: start: 20230721

REACTIONS (6)
  - Multiple sclerosis relapse [Unknown]
  - Gait disturbance [Unknown]
  - Language disorder [Unknown]
  - Pollakiuria [Unknown]
  - Unresponsive to stimuli [Unknown]
  - Fatigue [Unknown]

NARRATIVE: CASE EVENT DATE: 20230708
